FAERS Safety Report 25144768 (Version 2)
Quarter: 2025Q2

REPORT INFORMATION
  Report Type: Report from Study
  Country: US (occurrence: US)
  Receive Date: 20250401
  Receipt Date: 20250418
  Transmission Date: 20250717
  Serious: No
  Sender: ABBVIE
  Company Number: US-ABBVIE-6201550

PATIENT
  Age: 61 Year
  Sex: Female
  Weight: 64.41 kg

DRUGS (2)
  1. CREON [Suspect]
     Active Substance: PANCRELIPASE AMYLASE\PANCRELIPASE LIPASE\PANCRELIPASE PROTEASE
     Indication: Pancreatic carcinoma
     Route: 048
     Dates: start: 202401
  2. ATENOLOL [Concomitant]
     Active Substance: ATENOLOL
     Indication: Blood pressure management

REACTIONS (6)
  - Nausea [Recovered/Resolved]
  - Blood potassium decreased [Recovered/Resolved]
  - Vitamin B12 decreased [Recovered/Resolved]
  - Vitamin D decreased [Recovered/Resolved]
  - Neuralgia [Unknown]
  - Blood magnesium decreased [Recovered/Resolved]

NARRATIVE: CASE EVENT DATE: 20240101
